FAERS Safety Report 6185356-4 (Version None)
Quarter: 2009Q2

REPORT INFORMATION
  Report Type: 
  Country: None (occurrence: None)
  Receive Date: 20090511
  Receipt Date: 20090408
  Transmission Date: 20091009
  Serious: No
  Sender: FDA-Public Use
  Company Number: US-BAYER-200917941NA

PATIENT
  Age: 36 Year
  Sex: Female

DRUGS (1)
  1. MIRENA [Suspect]
     Indication: POLYCYSTIC OVARIES
     Dosage: CONTINUOUS
     Route: 015
     Dates: start: 20060201

REACTIONS (4)
  - BREAST DISORDER [None]
  - BREAST PAIN [None]
  - OLIGOMENORRHOEA [None]
  - WEIGHT INCREASED [None]
